FAERS Safety Report 8835394 (Version 2)
Quarter: 2015Q2

REPORT INFORMATION
  Report Type: Report from Study
  Country: US (occurrence: US)
  Receive Date: 20121011
  Receipt Date: 20150505
  Transmission Date: 20150821
  Serious: Yes (Death)
  Sender: FDA-Public Use
  Company Number: US-ROCHE-1128963

PATIENT
  Sex: Male
  Weight: 142.4 kg

DRUGS (2)
  1. NUTROPIN AQ [Suspect]
     Active Substance: SOMATROPIN
     Indication: DWARFISM
     Route: 058
  2. NUTROPIN AQ [Suspect]
     Active Substance: SOMATROPIN
     Indication: GROWTH HORMONE DEFICIENCY

REACTIONS (6)
  - Hyperinsulinaemia [Unknown]
  - Coronary artery disease [Unknown]
  - Death [Fatal]
  - Fatigue [Unknown]
  - Hyperlipidaemia [Unknown]
  - Obesity [Unknown]
